FAERS Safety Report 25019875 (Version 1)
Quarter: 2025Q1

REPORT INFORMATION
  Report Type: Spontaneous
  Country: US (occurrence: US)
  Receive Date: 20250227
  Receipt Date: 20250227
  Transmission Date: 20250408
  Serious: Yes (Other)
  Sender: BIOMARIN
  Company Number: US-BIOMARINAP-US-2025-164249

PATIENT

DRUGS (1)
  1. VOXZOGO [Suspect]
     Active Substance: VOSORITIDE
     Indication: Product used for unknown indication
     Route: 058

REACTIONS (2)
  - Device breakage [Unknown]
  - Injection site pain [Unknown]
